FAERS Safety Report 21546975 (Version 7)
Quarter: 2023Q2

REPORT INFORMATION
  Report Type: Report from Study
  Country: US (occurrence: US)
  Receive Date: 20221103
  Receipt Date: 20230616
  Transmission Date: 20230722
  Serious: Yes (Other)
  Sender: FDA-Public Use
  Company Number: US-002147023-NVSC2022US247858

PATIENT
  Sex: Female

DRUGS (1)
  1. KESIMPTA [Suspect]
     Active Substance: OFATUMUMAB
     Indication: Product used for unknown indication
     Dosage: UNK
     Route: 065

REACTIONS (6)
  - Hypothyroidism [Unknown]
  - Poor quality sleep [Not Recovered/Not Resolved]
  - Initial insomnia [Not Recovered/Not Resolved]
  - Cholelithiasis [Unknown]
  - Thyroid mass [Unknown]
  - Asthenia [Unknown]
